FAERS Safety Report 21262997 (Version 1)
Quarter: 2022Q3

REPORT INFORMATION
  Report Type: Other
  Country: US (occurrence: None)
  Receive Date: 20220828
  Receipt Date: 20220828
  Transmission Date: 20221026
  Serious: Yes (Other)
  Sender: FDA-Public Use
  Company Number: US-ROCHE-3166050

PATIENT
  Sex: Female

DRUGS (10)
  1. OCREVUS [Suspect]
     Active Substance: OCRELIZUMAB
     Indication: Relapsing-remitting multiple sclerosis
     Dosage: 600 MG IV OVER AT LEAST 3.5 HRS EVERY 6 MONTHS
     Route: 042
     Dates: start: 20220424
  2. METHYLPREDNISOLONE [Concomitant]
     Active Substance: METHYLPREDNISOLONE
     Dosage: OVER 15 TO 60 MIN
     Route: 042
  3. ACETAMINOPHEN [Concomitant]
     Active Substance: ACETAMINOPHEN
     Dosage: PO 30 MIN PRIOR INFUSION
  4. DIPHENHYDRAMINE [Concomitant]
     Active Substance: DIPHENHYDRAMINE
  5. WELLBUTRIN [Concomitant]
     Active Substance: BUPROPION HYDROCHLORIDE
     Indication: Depression
     Dosage: PO QD
  6. LEXAPRO [Concomitant]
     Active Substance: ESCITALOPRAM OXALATE
     Indication: Depression
  7. BUPROPION HYDROCHLORIDE [Concomitant]
     Active Substance: BUPROPION HYDROCHLORIDE
     Route: 048
  8. CHOLECALCIFEROL [Concomitant]
     Active Substance: CHOLECALCIFEROL
  9. ESCITALOPRAM OXALATE [Concomitant]
     Active Substance: ESCITALOPRAM OXALATE
     Route: 048
  10. LEVONORGESTREL [Concomitant]
     Active Substance: LEVONORGESTREL

REACTIONS (31)
  - Laboratory test abnormal [Unknown]
  - Anxiety [Unknown]
  - Depression [Unknown]
  - Headache [Unknown]
  - Optic neuritis [Unknown]
  - Fatigue [Unknown]
  - Weight decreased [Unknown]
  - Eye pain [Unknown]
  - Vision blurred [Unknown]
  - Blindness [Unknown]
  - Chest pain [Unknown]
  - Constipation [Unknown]
  - Nausea [Unknown]
  - Pollakiuria [Unknown]
  - Increased tendency to bruise [Unknown]
  - Arthralgia [Unknown]
  - Back pain [Unknown]
  - Myalgia [Unknown]
  - Muscle spasms [Unknown]
  - Muscular weakness [Unknown]
  - Vertigo [Unknown]
  - Balance disorder [Unknown]
  - Dizziness [Unknown]
  - Paraesthesia [Unknown]
  - Hypoaesthesia [Unknown]
  - Speech disorder [Unknown]
  - Dyskinesia [Unknown]
  - Memory impairment [Unknown]
  - Mood altered [Unknown]
  - Agitation [Unknown]
  - Sleep disorder [Unknown]
